FAERS Safety Report 18735258 (Version 1)
Quarter: 2021Q1

REPORT INFORMATION
  Report Type: Spontaneous
  Country: US (occurrence: US)
  Receive Date: 20210113
  Receipt Date: 20210113
  Transmission Date: 20210419
  Serious: Yes (Death, Hospitalization, Other)
  Sender: FDA-Public Use
  Company Number: US-AMGEN-USASP2021002736

PATIENT

DRUGS (1)
  1. EPOETIN ALFA [Suspect]
     Active Substance: ERYTHROPOIETIN
     Indication: HAEMOGLOBIN DECREASED
     Dosage: UNK UNK, QWK
     Route: 065

REACTIONS (3)
  - Unevaluable event [Unknown]
  - Vascular access complication [Unknown]
  - Death [Fatal]
